FAERS Safety Report 11418405 (Version 2)
Quarter: 2015Q3

REPORT INFORMATION
  Report Type: Spontaneous
  Country: US (occurrence: US)
  Receive Date: 20150826
  Receipt Date: 20150921
  Transmission Date: 20151125
  Serious: Yes (Hospitalization)
  Sender: FDA-Public Use
  Company Number: US-ROCHE-1624907

PATIENT
  Sex: Male
  Weight: 65.38 kg

DRUGS (2)
  1. ESBRIET [Suspect]
     Active Substance: PIRFENIDONE
     Dosage: 801 MG TID / TOTAL: 2403 MG DAILY, 3 CAPS PO TID
     Route: 048
     Dates: start: 20150902
  2. ESBRIET [Suspect]
     Active Substance: PIRFENIDONE
     Indication: IDIOPATHIC PULMONARY FIBROSIS
     Dosage: 267 MG
     Route: 048

REACTIONS (7)
  - Dyspnoea [Unknown]
  - Flatulence [Unknown]
  - Abdominal discomfort [Unknown]
  - Tremor [Unknown]
  - Nausea [Unknown]
  - Pneumonia [Unknown]
  - Electrolyte imbalance [Unknown]
